FAERS Safety Report 8346041-3 (Version None)
Quarter: 2012Q2

REPORT INFORMATION
  Report Type: 
  Country: None (occurrence: None)
  Receive Date: 20120509
  Receipt Date: 20120507
  Transmission Date: 20120825
  Serious: Yes (Other)
  Sender: FDA-Public Use
  Company Number: US-PFIZER INC-2012111746

PATIENT
  Sex: Male
  Weight: 90 kg

DRUGS (3)
  1. CHANTIX [Suspect]
     Dosage: UNK
  2. CHANTIX [Suspect]
     Indication: SMOKING CESSATION THERAPY
     Dosage: 0.5 MG, 1X/DAY
     Dates: start: 20120423
  3. CHANTIX [Suspect]
     Dosage: 1 MG, 2X/DAY

REACTIONS (3)
  - POLYURIA [None]
  - DIARRHOEA [None]
  - NAUSEA [None]
